FAERS Safety Report 10004152 (Version 2)
Quarter: 2014Q1

REPORT INFORMATION
  Report Type: Spontaneous
  Country: IT (occurrence: IT)
  Receive Date: 20140312
  Receipt Date: 20140312
  Transmission Date: 20141002
  Serious: Yes (Hospitalization)
  Sender: FDA-Public Use
  Company Number: PHHY2014IT028943

PATIENT
  Sex: Female

DRUGS (3)
  1. KETOPROFEN [Suspect]
     Indication: ANTIINFLAMMATORY THERAPY
     Dosage: 160 MG, QD
     Route: 048
     Dates: start: 20140206, end: 20140209
  2. ACETYLSALICYLIC ACID [Suspect]
     Indication: ANTIINFLAMMATORY THERAPY
     Dosage: 300 MG, QD
     Route: 048
     Dates: start: 20140209, end: 20140211
  3. YMEA SILHOUET [Concomitant]
     Route: 048
     Dates: start: 20140130

REACTIONS (4)
  - Urticaria [Recovered/Resolved]
  - Erythema [Recovered/Resolved]
  - Pruritus [Recovered/Resolved]
  - Drug interaction [Recovered/Resolved]
